FAERS Safety Report 7861501-7 (Version None)
Quarter: 2011Q4

REPORT INFORMATION
  Report Type: 
  Country: None (occurrence: None)
  Receive Date: 20111027
  Receipt Date: 20111017
  Transmission Date: 20120403
  Serious: Yes (Other)
  Sender: FDA-Public Use
  Company Number: JP-PFIZER INC-2011251015

PATIENT
  Age: 5 Year
  Sex: Female

DRUGS (1)
  1. SOMATROPIN [Suspect]
     Indication: SMALL FOR DATES BABY
     Dosage: 0.4 MG, SEVEN TIMES A WEEK
     Dates: start: 20090806

REACTIONS (1)
  - HEPATIC FUNCTION ABNORMAL [None]
